FAERS Safety Report 6420859-6 (Version None)
Quarter: 2009Q4

REPORT INFORMATION
  Report Type: 
  Country: None (occurrence: None)
  Receive Date: 20091030
  Receipt Date: 20091020
  Transmission Date: 20100525
  Serious: Yes (Other)
  Sender: FDA-Public Use
  Company Number: RU-RANBAXY-2009R3-28776

PATIENT

DRUGS (2)
  1. OMEPRAZOLE+CLARITHROMYCIN+AMOXICILLIN [Suspect]
     Indication: GASTRIC ULCER
     Dosage: 40+1000+2000 MG, QD
     Route: 048
     Dates: start: 20091008, end: 20091013
  2. MAALOX [Concomitant]
     Indication: DRUG USE FOR UNKNOWN INDICATION
     Dosage: UNK
     Dates: start: 20091008, end: 20091013

REACTIONS (4)
  - ANGIOEDEMA [None]
  - HYPERSENSITIVITY [None]
  - RASH PAPULAR [None]
  - URTICARIA [None]
